FAERS Safety Report 8408712-X (Version None)
Quarter: 2012Q2

REPORT INFORMATION
  Report Type: 
  Country: None (occurrence: None)
  Receive Date: 20120604
  Receipt Date: 20120518
  Transmission Date: 20120825
  Serious: No
  Sender: FDA-Public Use
  Company Number: US-ROXANE LABORATORIES, INC.-2012-RO-01292RO

PATIENT
  Age: 44 Year
  Sex: Male

DRUGS (6)
  1. OXYCODONE HYDROCHLORIDE [Concomitant]
  2. COUMADIN [Concomitant]
  3. PERCOCET [Concomitant]
  4. PRILOCAINE HYDROCHLORIDE [Concomitant]
  5. METHADONE HYDROCHLORIDE [Suspect]
     Indication: PAIN
     Dosage: 30 MG
     Route: 048
  6. PRAVASTATIN [Concomitant]

REACTIONS (2)
  - DRUG LEVEL DECREASED [None]
  - DRUG SCREEN POSITIVE [None]
